FAERS Safety Report 12094500 (Version 2)
Quarter: 2016Q1

REPORT INFORMATION
  Report Type: Report from Study
  Country: US (occurrence: US)
  Receive Date: 20160219
  Receipt Date: 20160310
  Transmission Date: 20160526
  Serious: No
  Sender: FDA-Public Use
  Company Number: US-AMGEN-USASL2016019323

PATIENT
  Age: 80 Year
  Sex: Female

DRUGS (1)
  1. ENBREL [Suspect]
     Active Substance: ETANERCEPT
     Indication: RHEUMATOID ARTHRITIS
     Dosage: 50 MG, QWK
     Route: 065

REACTIONS (6)
  - Pain [Recovering/Resolving]
  - Viral infection [Unknown]
  - Myalgia [Recovering/Resolving]
  - Fibromyalgia [Recovering/Resolving]
  - Head discomfort [Unknown]
  - Rhinorrhoea [Unknown]
